FAERS Safety Report 21240821 (Version 1)
Quarter: 2022Q3

REPORT INFORMATION
  Report Type: Spontaneous
  Country: US (occurrence: None)
  Receive Date: 20220822
  Receipt Date: 20220822
  Transmission Date: 20221027
  Serious: Yes (Other)
  Sender: FDA-Public Use
  Company Number: None

PATIENT
  Age: 66 Year
  Sex: Female
  Weight: 61.65 kg

DRUGS (6)
  1. CHLORHEXIDINE GLUCONATE [Suspect]
     Active Substance: CHLORHEXIDINE GLUCONATE
     Dosage: OTHER QUANTITY : 15 OUNCE(S);?FREQUENCY : TWICE A DAY;?
     Dates: start: 20220810, end: 20220822
  2. SYNTHROID [Concomitant]
     Active Substance: LEVOTHYROXINE SODIUM
  3. PRALUENT [Concomitant]
     Active Substance: ALIROCUMAB
  4. Acylovir [Concomitant]
  5. Vit B12 SI due to bowel resection inability to absorb Vit B12 [Concomitant]
  6. VITAMIN D NOS [Concomitant]
     Active Substance: VITAMIN D NOS

REACTIONS (4)
  - Dizziness [None]
  - Balance disorder [None]
  - Productive cough [None]
  - Upper-airway cough syndrome [None]

NARRATIVE: CASE EVENT DATE: 20220810
